FAERS Safety Report 26126983 (Version 1)
Quarter: 2025Q4

REPORT INFORMATION
  Report Type: Spontaneous
  Country: IR (occurrence: IR)
  Receive Date: 20251205
  Receipt Date: 20251205
  Transmission Date: 20260117
  Serious: No
  Sender: BIOGEN
  Company Number: IR-BIOGEN-2093551

PATIENT
  Age: 69 Year
  Sex: Female

DRUGS (3)
  1. TYSABRI [Suspect]
     Active Substance: NATALIZUMAB
     Indication: Relapsing-remitting multiple sclerosis
     Dosage: 300MG/15ML
     Dates: start: 20240320
  2. LOSARTAN [Concomitant]
     Active Substance: LOSARTAN
  3. ROSUVASTATIN [Concomitant]
     Active Substance: ROSUVASTATIN

REACTIONS (1)
  - Rash [Unknown]
